FAERS Safety Report 4289374-2 (Version None)
Quarter: 2004Q1

REPORT INFORMATION
  Report Type: 
  Country: None (occurrence: None)
  Receive Date: 20040126
  Receipt Date: 20030924
  Transmission Date: 20041129
  Serious: No
  Sender: FDA-Public Use
  Company Number: USA030948262

PATIENT
  Age: 77 Year
  Sex: Female
  Weight: 65 kg

DRUGS (2)
  1. FORTEO [Suspect]
     Indication: OSTEOPOROSIS
     Dosage: 20 UG/DAY
     Dates: start: 20030301
  2. CALCIUM [Concomitant]

REACTIONS (4)
  - CONSTIPATION [None]
  - LETHARGY [None]
  - MUSCULAR WEAKNESS [None]
  - MYALGIA [None]
